FAERS Safety Report 8063636-5 (Version None)
Quarter: 2012Q1

REPORT INFORMATION
  Report Type: 
  Country: None (occurrence: None)
  Receive Date: 20120123
  Receipt Date: 20120118
  Transmission Date: 20120608
  Serious: Yes (Other)
  Sender: FDA-Public Use
  Company Number: US-JNJFOC-20110403876

PATIENT
  Sex: Male
  Weight: 140.16 kg

DRUGS (23)
  1. LEVAQUIN [Suspect]
     Route: 065
     Dates: start: 20070315
  2. TRAMADOL HCL [Concomitant]
     Route: 065
  3. LEVAQUIN [Suspect]
     Route: 065
     Dates: start: 20070308
  4. LEVAQUIN [Suspect]
     Route: 065
     Dates: start: 20080919
  5. LEVAQUIN [Suspect]
     Route: 065
     Dates: start: 20070308
  6. DECONAMINE SR [Concomitant]
     Dosage: PRN
     Route: 048
  7. ZITHROMAX [Concomitant]
     Route: 065
  8. LEVAQUIN [Suspect]
     Route: 065
     Dates: start: 20080919
  9. LEVAQUIN [Suspect]
     Indication: SINUSITIS
     Route: 065
     Dates: start: 20100720
  10. LEVAQUIN [Suspect]
     Route: 065
     Dates: start: 20070322
  11. VERAMYST NOS [Suspect]
     Indication: PRODUCT USED FOR UNKNOWN INDICATION
     Route: 045
  12. LEVAQUIN [Suspect]
     Route: 065
     Dates: start: 20100720
  13. LEVAQUIN [Suspect]
     Route: 065
     Dates: start: 20070315
  14. LEVAQUIN [Suspect]
     Route: 065
     Dates: start: 20080101
  15. LEVAQUIN [Suspect]
     Route: 065
     Dates: start: 20080101
  16. HYDROCORTISONE [Suspect]
     Indication: PRODUCT USED FOR UNKNOWN INDICATION
     Route: 065
  17. LEVAQUIN [Suspect]
     Route: 065
     Dates: start: 20070322
  18. FLONASE [Suspect]
     Indication: PRODUCT USED FOR UNKNOWN INDICATION
     Route: 045
  19. VIAGRA [Concomitant]
     Dosage: AS NEEDED 1 HOUR PRIOR TO INTERCOURSE
     Route: 065
  20. ALBUTEROL [Concomitant]
     Route: 065
  21. DYAZIDE [Concomitant]
     Route: 048
  22. FLUOCINONIDE [Concomitant]
     Route: 065
  23. ATARAX [Concomitant]
     Indication: PROPHYLAXIS
     Route: 065

REACTIONS (15)
  - JOINT SWELLING [None]
  - LIGAMENT SPRAIN [None]
  - FALL [None]
  - PERIPHERAL COLDNESS [None]
  - STAPHYLOCOCCAL INFECTION [None]
  - TENDONITIS [None]
  - TENDON CALCIFICATION [None]
  - SENSORY LOSS [None]
  - PALMAR FASCIITIS [None]
  - BACK PAIN [None]
  - PLANTAR FASCIITIS [None]
  - MYALGIA [None]
  - ARTHRALGIA [None]
  - PARAESTHESIA [None]
  - HYPOAESTHESIA [None]
